FAERS Safety Report 4313511-4 (Version None)
Quarter: 2004Q1

REPORT INFORMATION
  Report Type: 
  Country: None (occurrence: None)
  Receive Date: 20040304
  Receipt Date: 20040213
  Transmission Date: 20041129
  Serious: Yes (Death)
  Sender: FDA-Public Use
  Company Number: US_0402100856

PATIENT
  Sex: Female

DRUGS (1)
  1. ILETIN-INSULIN-ANIMAL (INSULI [Suspect]

REACTIONS (2)
  - DIABETIC COMPLICATION [None]
  - GANGRENE [None]
